FAERS Safety Report 4753659-3 (Version None)
Quarter: 2005Q3

REPORT INFORMATION
  Report Type: 
  Country: None (occurrence: None)
  Receive Date: 20050824
  Receipt Date: 20050815
  Transmission Date: 20060218
  Serious: Yes (Death)
  Sender: FDA-Public Use
  Company Number: 2005-08-0940

PATIENT
  Age: 69 Year
  Sex: Male

DRUGS (5)
  1. PEG-INTRON [Suspect]
     Indication: HEPATITIS C
     Dosage: 100 MCG QW SUBCUTANEOUS
     Route: 058
     Dates: start: 20050223, end: 20050810
  2. REBETOL [Suspect]
     Indication: HEPATITIS C
     Dosage: 800 MG ORAL
     Route: 048
     Dates: start: 20050223, end: 20050810
  3. FERON INJECTABLE POWDER [Suspect]
     Indication: HEPATITIS C
     Dosage: SEE IMAGE
     Dates: start: 20050209, end: 20050222
  4. FERON INJECTABLE POWDER [Suspect]
     Indication: HEPATITIS C
     Dosage: SEE IMAGE
     Dates: start: 20050209, end: 20050801
  5. FERON INJECTABLE POWDER [Suspect]
     Indication: HEPATITIS C
     Dosage: SEE IMAGE
     Dates: start: 20050801, end: 20050801

REACTIONS (1)
  - CEREBRAL HAEMORRHAGE [None]
